FAERS Safety Report 7335896-7 (Version None)
Quarter: 2011Q1

REPORT INFORMATION
  Report Type: 
  Country: None (occurrence: None)
  Receive Date: 20110301
  Receipt Date: 20110301
  Transmission Date: 20110831
  Serious: Yes (Hospitalization)
  Sender: FDA-Public Use
  Company Number: None

PATIENT
  Sex: Female
  Weight: 88 kg

DRUGS (2)
  1. CYCLOPHOSPHAMIDE [Suspect]
     Dosage: 3780 MG
     Dates: end: 20100804
  2. DOXORUBICIN HCL [Suspect]
     Dosage: 378 MG
     Dates: end: 20100804

REACTIONS (4)
  - PULMONARY EMBOLISM [None]
  - RESPIRATORY FAILURE [None]
  - PNEUMONIA [None]
  - DEEP VEIN THROMBOSIS [None]
